FAERS Safety Report 5959866-6 (Version None)
Quarter: 2008Q4

REPORT INFORMATION
  Report Type: 
  Country: None (occurrence: None)
  Receive Date: 20081119
  Receipt Date: 20081119
  Transmission Date: 20090506
  Serious: Yes (Disabling)
  Sender: FDA-Public Use
  Company Number: None

PATIENT
  Age: 70 Year
  Sex: Male
  Weight: 81.6475 kg

DRUGS (1)
  1. VYTORIN [Suspect]
     Indication: ARTERIOSCLEROSIS
     Dosage: 80/10 1/DAY BUCCAL
     Route: 002
     Dates: start: 20071115, end: 20081028

REACTIONS (2)
  - ASTHENIA [None]
  - MYALGIA [None]
